FAERS Safety Report 17774087 (Version 4)
Quarter: 2020Q3

REPORT INFORMATION
  Report Type: Spontaneous
  Country: LB (occurrence: LB)
  Receive Date: 20200513
  Receipt Date: 20200710
  Transmission Date: 20201102
  Serious: Yes (Death, Hospitalization)
  Sender: FDA-Public Use
  Company Number: LB-ACTELION-A-CH2020-204908

PATIENT
  Age: 67 Year
  Sex: Male

DRUGS (9)
  1. ALDACTONE A [Interacting]
     Active Substance: SPIRONOLACTONE
     Indication: DIURETIC THERAPY
     Route: 065
  2. OXYGEN. [Concomitant]
     Active Substance: OXYGEN
     Dosage: 5 L
  3. BURINEX [Interacting]
     Active Substance: BUMETANIDE
     Indication: DIURETIC THERAPY
     Route: 065
  4. TRAJENTA [Concomitant]
     Active Substance: LINAGLIPTIN
     Indication: DIABETES MELLITUS
     Dosage: 5 MG, QD
     Route: 048
     Dates: end: 20200621
  5. NOVONORM [Concomitant]
     Active Substance: REPAGLINIDE
     Indication: DIABETES MELLITUS
     Dosage: UNK
     Dates: end: 20200621
  6. OPSUMIT [Suspect]
     Active Substance: MACITENTAN
     Indication: PULMONARY ARTERIAL HYPERTENSION
     Dosage: 10 MG, QD
     Route: 048
     Dates: start: 2019, end: 20200621
  7. LASIX [Interacting]
     Active Substance: FUROSEMIDE
     Indication: DIURETIC THERAPY
     Dosage: UNK
     Route: 065
  8. LASIX [Interacting]
     Active Substance: FUROSEMIDE
     Indication: LOCALISED OEDEMA
     Dosage: 2 CC, Q1HOUR
     Route: 042
     Dates: end: 20200621
  9. MONO?TILDIEM [Concomitant]
     Active Substance: DILTIAZEM HYDROCHLORIDE
     Indication: HYPERTENSION
     Dosage: 200 MG, QD
     Route: 048
     Dates: end: 20200621

REACTIONS (14)
  - Hypotension [Not Recovered/Not Resolved]
  - Altered state of consciousness [Not Recovered/Not Resolved]
  - Death [Fatal]
  - Left ventricular failure [Unknown]
  - Constipation [Not Recovered/Not Resolved]
  - Drug resistance [Unknown]
  - Ammonia increased [Not Recovered/Not Resolved]
  - Respiratory distress [Unknown]
  - Nystagmus [Not Recovered/Not Resolved]
  - Hyponatraemia [Unknown]
  - Pulmonary hypertension [Unknown]
  - Localised oedema [Unknown]
  - Cyanosis [Unknown]
  - Drug interaction [Unknown]

NARRATIVE: CASE EVENT DATE: 202006
